FAERS Safety Report 19399920 (Version 2)
Quarter: 2021Q2

REPORT INFORMATION
  Report Type: Spontaneous
  Country: US (occurrence: US)
  Receive Date: 20210610
  Receipt Date: 20210621
  Transmission Date: 20210717
  Serious: Yes (Other)
  Sender: FDA-Public Use
  Company Number: US-TEVA-2021-US-1920109

PATIENT
  Age: 57 Year
  Sex: Male

DRUGS (1)
  1. TESTOSTERONE ENANTHATE. [Suspect]
     Active Substance: TESTOSTERONE ENANTHATE
     Indication: HYPOGONADISM
     Route: 030

REACTIONS (4)
  - Renal impairment [Unknown]
  - Cardiomyopathy [Unknown]
  - Thrombosis [Unknown]
  - Incorrect dose administered [Unknown]
